FAERS Safety Report 6776741-8 (Version None)
Quarter: 2010Q2

REPORT INFORMATION
  Report Type: 
  Country: None (occurrence: None)
  Receive Date: 20100617
  Receipt Date: 20100617
  Transmission Date: 20101027
  Serious: Yes (Hospitalization)
  Sender: FDA-Public Use
  Company Number: None

PATIENT
  Age: 64 Year
  Sex: Female

DRUGS (1)
  1. SODIUM FERRIC GLUCONATE [Suspect]
     Indication: IRON DEFICIENCY ANAEMIA
     Dosage: 125 MG ONCE IV
     Route: 042
     Dates: start: 20100112, end: 20100112

REACTIONS (1)
  - ANGIOEDEMA [None]
